FAERS Safety Report 8227034-3 (Version None)
Quarter: 2012Q1

REPORT INFORMATION
  Report Type: 
  Country: None (occurrence: None)
  Receive Date: 20120322
  Receipt Date: 20120315
  Transmission Date: 20120608
  Serious: No
  Sender: FDA-Public Use
  Company Number: US-PFIZER INC-2012071027

PATIENT
  Sex: Male

DRUGS (1)
  1. PROTONIX [Suspect]

REACTIONS (3)
  - LOW DENSITY LIPOPROTEIN INCREASED [None]
  - HIGH DENSITY LIPOPROTEIN DECREASED [None]
  - MEMORY IMPAIRMENT [None]
